FAERS Safety Report 7011397-0 (Version None)
Quarter: 2010Q3

REPORT INFORMATION
  Report Type: 
  Country: None (occurrence: None)
  Receive Date: 20100922
  Receipt Date: 20100922
  Transmission Date: 20110219
  Serious: Yes (Other)
  Sender: FDA-Public Use
  Company Number: None

PATIENT
  Sex: Female
  Weight: 63.5036 kg

DRUGS (1)
  1. SAVELLA [Suspect]
     Indication: FIBROMYALGIA
     Dosage: 1 TAB 1ST DAY 2 NEXT DAY UNTIL PROGRESS TO 4 A DAY
     Dates: start: 20100722, end: 20100820

REACTIONS (6)
  - FEELING ABNORMAL [None]
  - FIBROMYALGIA [None]
  - HYPERHIDROSIS [None]
  - PAIN [None]
  - PARAESTHESIA [None]
  - TINNITUS [None]
